FAERS Safety Report 5572080-1 (Version None)
Quarter: 2007Q4

REPORT INFORMATION
  Report Type: 
  Country: None (occurrence: None)
  Receive Date: 20071219
  Receipt Date: 20071211
  Transmission Date: 20080405
  Serious: Yes (Death)
  Sender: FDA-Public Use
  Company Number: 2007US003079

PATIENT
  Age: 58 Year

DRUGS (2)
  1. PROGRAF [Suspect]
     Indication: PROPHYLAXIS
     Dosage: 1.5 MG, UID/QD, ORAL
     Route: 048
  2. RAPAMUNE [Concomitant]

REACTIONS (1)
  - DEATH [None]
